FAERS Safety Report 6617830-8 (Version None)
Quarter: 2010Q1

REPORT INFORMATION
  Report Type: 
  Country: None (occurrence: None)
  Receive Date: 20100308
  Receipt Date: 20100303
  Transmission Date: 20100710
  Serious: Yes (Death, Hospitalization)
  Sender: FDA-Public Use
  Company Number: PHHY2010CA12867

PATIENT
  Sex: Female

DRUGS (1)
  1. ACLASTA [Suspect]
     Indication: OSTEOPOROSIS
     Dosage: 5 MG
     Route: 042
     Dates: start: 20090126

REACTIONS (6)
  - DEATH [None]
  - FALL [None]
  - MYOCARDIAL INFARCTION [None]
  - PNEUMONIA [None]
  - RIB FRACTURE [None]
  - UPPER LIMB FRACTURE [None]
